FAERS Safety Report 6824154-2 (Version None)
Quarter: 2010Q3

REPORT INFORMATION
  Report Type: 
  Country: None (occurrence: None)
  Receive Date: 20100708
  Receipt Date: 20100611
  Transmission Date: 20110219
  Serious: Yes (Hospitalization)
  Sender: FDA-Public Use
  Company Number: JP-SANOFI-AVENTIS-2010SA034177

PATIENT
  Age: 60 Year
  Sex: Male
  Weight: 68 kg

DRUGS (4)
  1. PLAVIX [Suspect]
     Indication: ANGINA UNSTABLE
     Route: 048
     Dates: start: 20090924
  2. ASPIRIN [Concomitant]
     Indication: ANGINA UNSTABLE
     Route: 048
     Dates: start: 20090923
  3. OMEPRAL [Concomitant]
     Route: 048
     Dates: start: 20090924
  4. ROSUVASTATIN CALCIUM [Concomitant]
     Route: 048
     Dates: start: 20091006

REACTIONS (2)
  - ANGINA PECTORIS [None]
  - IN-STENT CORONARY ARTERY RESTENOSIS [None]
